FAERS Safety Report 7951967-6 (Version None)
Quarter: 2011Q4

REPORT INFORMATION
  Report Type: 
  Country: None (occurrence: None)
  Receive Date: 20111201
  Receipt Date: 20111128
  Transmission Date: 20120403
  Serious: Yes (Other)
  Sender: FDA-Public Use
  Company Number: HU-PFIZER INC-2011282859

PATIENT
  Age: 69 Year
  Sex: Female
  Weight: 57 kg

DRUGS (10)
  1. RAMIPRIL [Concomitant]
     Dosage: UNK
  2. SULFASALAZINE [Concomitant]
     Dosage: UNK
  3. CORVATON RETARD [Concomitant]
     Dosage: UNK
  4. XANAX [Suspect]
     Indication: MENTAL DISORDER
     Dosage: 0.25 MG, 3X/DAY
     Dates: start: 20071001, end: 20100101
  5. XANAX [Interacting]
     Indication: PANIC REACTION
     Dosage: 0.25 MG, 2X/DAY
     Dates: start: 20100101, end: 20111118
  6. TICLID [Concomitant]
     Dosage: UNK
  7. MIDAZOLAM HCL [Concomitant]
     Indication: SEDATIVE THERAPY
     Dosage: UNK
  8. NORFLOXACIN [Concomitant]
     Dosage: UNK
     Dates: start: 20101104, end: 20101106
  9. PLAVIX [Interacting]
     Dosage: UNK
     Dates: end: 20081201
  10. TALLITON [Concomitant]
     Dosage: UNK

REACTIONS (3)
  - PHOTOSENSITIVITY REACTION [None]
  - DRUG INTERACTION [None]
  - HEAT STROKE [None]
